FAERS Safety Report 8842291 (Version 2)
Quarter: 2012Q4

REPORT INFORMATION
  Report Type: 
  Country: US (occurrence: US)
  Receive Date: 20121016
  Receipt Date: 20121107
  Transmission Date: 20130627
  Serious: No
  Sender: FDA-Public Use
  Company Number: US-PFIZER INC-2012253061

PATIENT
  Age: 3 Year
  Sex: Female

DRUGS (4)
  1. GENOTROPIN [Suspect]
     Indication: TURNER^S SYNDROME
     Dosage: 0.6 mg, 1x/day
     Route: 058
     Dates: start: 201009
  2. CENTRUM KIDS [Concomitant]
     Dosage: half tablet of an unknown dose daily
     Route: 048
  3. MULTIVITE [Concomitant]
     Dosage: UNK
  4. HYDROCORTISONE [Concomitant]
     Dosage: 2.5 %, UNK
     Route: 061

REACTIONS (2)
  - Malaise [Recovered/Resolved]
  - Pyrexia [Recovered/Resolved]
